FAERS Safety Report 12548313 (Version 1)
Quarter: 2016Q3

REPORT INFORMATION
  Report Type: Spontaneous
  Country: US (occurrence: US)
  Receive Date: 20160712
  Receipt Date: 20160712
  Transmission Date: 20161109
  Serious: Yes (Hospitalization, Other)
  Sender: FDA-Public Use
  Company Number: US-AUROBINDO-AUR-APL-2016-08197

PATIENT
  Age: 45 Year
  Sex: Female

DRUGS (4)
  1. MONTELUKAST [Suspect]
     Active Substance: MONTELUKAST SODIUM
     Indication: PRURITUS
  2. NIFEDIPINE. [Concomitant]
     Active Substance: NIFEDIPINE
     Indication: PRURITUS
     Dosage: UNK
     Route: 065
  3. MONTELUKAST [Suspect]
     Active Substance: MONTELUKAST SODIUM
     Indication: URTICARIA CHRONIC
     Dosage: UNK
     Route: 065
  4. KETOCONAZOLE. [Concomitant]
     Active Substance: KETOCONAZOLE
     Indication: URTICARIA CHRONIC
     Dosage: UNK
     Route: 065

REACTIONS (10)
  - Excoriation [Recovering/Resolving]
  - Lethargy [Recovering/Resolving]
  - Transaminases increased [Recovering/Resolving]
  - Nausea [Recovering/Resolving]
  - Off label use [Recovering/Resolving]
  - Flushing [Recovering/Resolving]
  - Drug-induced liver injury [Recovering/Resolving]
  - Pyrexia [Recovering/Resolving]
  - Jaundice [Recovering/Resolving]
  - Abdominal tenderness [Recovering/Resolving]
